FAERS Safety Report 8862640 (Version 1)
Quarter: 2012Q4

REPORT INFORMATION
  Report Type: 
  Country: GB (occurrence: GB)
  Receive Date: 20121026
  Receipt Date: 20121026
  Transmission Date: 20130627
  Serious: Yes (Other)
  Sender: FDA-Public Use
  Company Number: GB-ELI_LILLY_AND_COMPANY-GB201210005075

PATIENT
  Sex: Female

DRUGS (2)
  1. ZYPREXA VELOTAB [Suspect]
     Dosage: 7.5 mg, each morning
  2. ZYPREXA VELOTAB [Suspect]
     Dosage: 10 mg, each evening

REACTIONS (1)
  - Gastrostomy tube insertion [Unknown]
